FAERS Safety Report 19727897 (Version 1)
Quarter: 2021Q3

REPORT INFORMATION
  Report Type: Spontaneous
  Country: DE (occurrence: DE)
  Receive Date: 20210820
  Receipt Date: 20210820
  Transmission Date: 20211014
  Serious: Yes (Death, Hospitalization)
  Sender: FDA-Public Use
  Company Number: DE-TEVA-2021-DE-1942470

PATIENT
  Age: 67 Year
  Sex: Female
  Weight: 68 kg

DRUGS (16)
  1. PANTOPRAZOL [Concomitant]
     Active Substance: PANTOPRAZOLE SODIUM
     Dosage: 40 MILLIGRAM DAILY; 1?0?0?0
  2. MORPHIN [Concomitant]
     Active Substance: MORPHINE
     Dosage: 5 MG, AS NEEDED
  3. TOLVAPTAN [Concomitant]
     Active Substance: TOLVAPTAN
     Dosage: 7.5 MILLIGRAM DAILY; 1?0?0?0
  4. CANDESARTAN. [Concomitant]
     Active Substance: CANDESARTAN
     Dosage: 4 MILLIGRAM DAILY; 1?0?0?0
  5. METAMIZOL [Concomitant]
     Active Substance: METAMIZOLE SODIUM
     Dosage: 160 GTT DAILY; 1?1?1?1
  6. PREGABALIN. [Concomitant]
     Active Substance: PREGABALIN
     Dosage: 100 MILLIGRAM DAILY; 1?0?1?0
  7. LEVOTHYROXIN?NATRIUM [Concomitant]
     Active Substance: LEVOTHYROXINE SODIUM
     Dosage: 125 MICROGRAM DAILY; 1?0?0?0
  8. SPIRONOLACTON [Concomitant]
     Active Substance: SPIRONOLACTONE
     Dosage: 25 MILLIGRAM DAILY; 1?0?0?0
  9. BISACODYL. [Concomitant]
     Active Substance: BISACODYL
     Dosage: 10 GTT DAILY; 1?0?0?0
  10. ZOLEDRONSAURE [Suspect]
     Active Substance: ZOLEDRONIC ACID
     Dosage: ACCORDING TO THE SCHEME
     Route: 065
  11. DOMPERIDON [Concomitant]
     Active Substance: DOMPERIDONE
     Dosage: 20 MILLIGRAM DAILY; 1?0?1?0
  12. KALIUMCITRAT [Concomitant]
     Active Substance: POTASSIUM CITRATE
     Dosage: 3 DOSAGE FORMS DAILY; 1?1?1?0
  13. AMITRIPTYLIN [Concomitant]
     Active Substance: AMITRIPTYLINE
     Dosage: 50 MILLIGRAM DAILY; 0?0?0?1
  14. KALIUMCHLORID [Concomitant]
     Active Substance: POTASSIUM CHLORIDE
     Dosage: 2 DOSAGE FORMS DAILY; 1?0?1?0
  15. KALIUMPHOSPHAT/NATRIUMPHOSPHAT [Concomitant]
     Dosage: 6 DOSAGE FORMS DAILY; 2?2?2?0
  16. MORPHIN [Concomitant]
     Active Substance: MORPHINE
     Dosage: 40 MILLIGRAM DAILY; 10 MG, 2?0?2?0

REACTIONS (7)
  - General physical health deterioration [Unknown]
  - Musculoskeletal pain [Unknown]
  - Hypertension [Unknown]
  - Condition aggravated [Unknown]
  - Night sweats [Unknown]
  - Anaemia [Unknown]
  - Pain [Unknown]
